FAERS Safety Report 17276073 (Version 2)
Quarter: 2021Q2

REPORT INFORMATION
  Report Type: Report from Study
  Country: US (occurrence: US)
  Receive Date: 20200116
  Receipt Date: 20210527
  Transmission Date: 20210716
  Serious: No
  Sender: FDA-Public Use
  Company Number: US-BRISTOL-MYERS SQUIBB COMPANY-BMS-2019-122500

PATIENT
  Age: 58 Year
  Sex: Male

DRUGS (1)
  1. APIXABAN [Suspect]
     Active Substance: APIXABAN
     Indication: PULMONARY EMBOLISM
     Dosage: 5 MILLIGRAM, BID
     Route: 065
     Dates: start: 2018

REACTIONS (5)
  - Lymphadenopathy [Unknown]
  - Hypoacusis [Unknown]
  - Feeding disorder [Unknown]
  - Hypersensitivity [Unknown]
  - Malaise [Unknown]
